FAERS Safety Report 18473221 (Version 1)
Quarter: 2020Q4

REPORT INFORMATION
  Report Type: Spontaneous
  Country: NL (occurrence: NL)
  Receive Date: 20201106
  Receipt Date: 20201106
  Transmission Date: 20210114
  Serious: Yes (Other)
  Sender: FDA-Public Use
  Company Number: NL-TEVA-2020-NL-1845046

PATIENT
  Age: 15 Year
  Sex: Female
  Weight: 51 kg

DRUGS (3)
  1. FLUOXETINE CAPSULE 20MG / BRAND NAME NOT SPECIFIED [Suspect]
     Active Substance: FLUOXETINE HYDROCHLORIDE
     Indication: DEPRESSION
     Dosage: 20 MILLIGRAM DAILY; 1X PER DAY 1 CAPSULE, THERAPY END DATE: ASKU
     Dates: start: 2020
  2. RISPERIDON TABLET OMHULD 0,5MG / RISPERDAL TABLET OMHULD 0,5MG [Concomitant]
     Dosage: 0.5 MILLIGRAM, THERAPY START DATE AND END DATE: ASKU
  3. TRIPTORELINE PDR V INJSUSP 11,25MG / PAMORELIN INJPDR FLACON 11,25MG + [Concomitant]
     Dosage: 11.25 MILLIGRAM, THERAPY START DATE AND END DATE: ASKU

REACTIONS (3)
  - Mania [Not Recovered/Not Resolved]
  - Intentional self-injury [Not Recovered/Not Resolved]
  - Depression [Not Recovered/Not Resolved]

NARRATIVE: CASE EVENT DATE: 20200901
